FAERS Safety Report 5768144-X (Version None)
Quarter: 2008Q2

REPORT INFORMATION
  Report Type: 
  Country: None (occurrence: None)
  Receive Date: 20080601
  Receipt Date: 20080227
  Transmission Date: 20081010
  Serious: No
  Sender: FDA-Public Use
  Company Number: US200712004280

PATIENT
  Age: 64 Year
  Sex: Male
  Weight: 101.1 kg

DRUGS (13)
  1. BYETTA [Suspect]
     Indication: TYPE 2 DIABETES MELLITUS
     Dosage: 5 UG, 2/D, SUBCUTANEOUS; 10 UG, 2/D, SUBCUTANEOUS
     Route: 058
     Dates: start: 20070601, end: 20070701
  2. BYETTA [Suspect]
     Indication: TYPE 2 DIABETES MELLITUS
     Dosage: 5 UG, 2/D, SUBCUTANEOUS; 10 UG, 2/D, SUBCUTANEOUS
     Route: 058
     Dates: start: 20070701, end: 20071001
  3. EXENATIDE (EXENATIDE) [Concomitant]
  4. ANTI-DIABETICS [Concomitant]
  5. ALLOPURINOL [Concomitant]
  6. ZOCOR [Concomitant]
  7. TRICOR [Concomitant]
  8. CHOLESTEROL- AND TRIGLYCERIDE REDUCERS [Concomitant]
  9. POTASSIUM (POTASSIUM) [Concomitant]
  10. VERAPAMIL [Concomitant]
  11. LOZOL [Concomitant]
  12. ASPIRIN [Concomitant]
  13. VITAMIN B-COMPLEX WITH VITAMIN C [Concomitant]

REACTIONS (6)
  - ANOREXIA [None]
  - ARTHRITIS [None]
  - DYSPEPSIA [None]
  - NAUSEA [None]
  - RENAL FAILURE [None]
  - WEIGHT DECREASED [None]
